FAERS Safety Report 7529863-8 (Version None)
Quarter: 2011Q2

REPORT INFORMATION
  Report Type: 
  Country: None (occurrence: None)
  Receive Date: 20110520
  Receipt Date: 20100625
  Transmission Date: 20111010
  Serious: Yes (Hospitalization)
  Sender: FDA-Public Use
  Company Number: 2010SP036191

PATIENT
  Sex: Female

DRUGS (1)
  1. FOLLISTIM AQ [Suspect]
     Indication: PRODUCT USED FOR UNKNOWN INDICATION
     Dosage: 300 IU;SC
     Route: 058

REACTIONS (1)
  - OVARIAN HYPERSTIMULATION SYNDROME [None]
